FAERS Safety Report 16618585 (Version 1)
Quarter: 2019Q3

REPORT INFORMATION
  Report Type: Spontaneous
  Country: US (occurrence: US)
  Receive Date: 20190723
  Receipt Date: 20190723
  Transmission Date: 20191004
  Serious: No
  Sender: FDA-Public Use
  Company Number: US-LEADING PHARMA, LLC-2071192

PATIENT
  Age: 83 Year
  Sex: Female

DRUGS (1)
  1. LORAZEPAM. [Suspect]
     Active Substance: LORAZEPAM
     Route: 048

REACTIONS (6)
  - Asthenia [Recovered/Resolved]
  - Pollakiuria [Recovered/Resolved]
  - Balance disorder [Recovered/Resolved]
  - Off label use [Recovered/Resolved]
  - Sleep disorder [Recovered/Resolved]
  - Dry mouth [Recovered/Resolved]
